FAERS Safety Report 8037152-0 (Version None)
Quarter: 2012Q1

REPORT INFORMATION
  Report Type: 
  Country: None (occurrence: None)
  Receive Date: 20120111
  Receipt Date: 20120109
  Transmission Date: 20120608
  Serious: Yes (Other)
  Sender: FDA-Public Use
  Company Number: US-PFIZER INC-2011244145

PATIENT
  Sex: Male
  Weight: 96.1 kg

DRUGS (6)
  1. TRAZODONE [Concomitant]
     Dosage: 300 MG, 1X/DAY
  2. OXYCODONE [Concomitant]
     Indication: PAIN
     Dosage: 15 MG, AS NEEDED
  3. EFFEXOR XR [Suspect]
     Indication: DEPRESSION
     Dosage: 150 MG, 2X/DAY
     Route: 048
     Dates: start: 20090101, end: 20110801
  4. EFFEXOR XR [Suspect]
     Indication: ASTHENIA
  5. BYSTOLIC [Concomitant]
     Indication: HYPERTENSION
     Dosage: 10 MG, 1X/DAY
  6. PHENYTOIN [Concomitant]
     Indication: CONVULSION
     Dosage: 100 MG, 4X/DAY

REACTIONS (2)
  - DYSKINESIA [None]
  - WITHDRAWAL SYNDROME [None]
